FAERS Safety Report 22039857 (Version 1)
Quarter: 2023Q1

REPORT INFORMATION
  Report Type: Report from Study
  Country: IT (occurrence: IT)
  Receive Date: 20230227
  Receipt Date: 20230227
  Transmission Date: 20230418
  Serious: Yes (Other)
  Sender: FDA-Public Use
  Company Number: None

PATIENT
  Age: 71 Year
  Sex: Male

DRUGS (2)
  1. PEMETREXED [Suspect]
     Active Substance: PEMETREXED
     Indication: Pleural mesothelioma malignant
     Dosage: 500 MG/M2 DAY 1 OF EACH CYCLE WITH CYCLES REPEATED EVERY 21 DAYS (SIX CYCLES TOTAL)
     Route: 065
     Dates: start: 20210915, end: 20220304
  2. CARBOPLATIN [Suspect]
     Active Substance: CARBOPLATIN
     Indication: Pleural mesothelioma malignant
     Dosage: AUC 5 ON DAY 1 OF EACH CYCLE WITH CYCLES REPEATED EVERY 21 DAYS (6 CYCLES TOTAL)
     Route: 065
     Dates: start: 20210915, end: 20220304

REACTIONS (1)
  - Leukaemia [Not Recovered/Not Resolved]

NARRATIVE: CASE EVENT DATE: 20230123
